FAERS Safety Report 5637187-9 (Version None)
Quarter: 2008Q1

REPORT INFORMATION
  Report Type: 
  Country: None (occurrence: None)
  Receive Date: 20080225
  Receipt Date: 20080212
  Transmission Date: 20080703
  Serious: Yes (Hospitalization)
  Sender: FDA-Public Use
  Company Number: US-AMGEN-US264640

PATIENT
  Sex: Female

DRUGS (11)
  1. PANITUMUMAB [Suspect]
     Indication: COLORECTAL CANCER
     Route: 042
     Dates: start: 20071029
  2. FLUOROURACIL [Suspect]
     Route: 042
  3. IRINOTECAN [Concomitant]
     Route: 042
  4. LEUCOVORIN CALCIUM [Concomitant]
     Route: 042
  5. LYRICA [Concomitant]
     Route: 048
     Dates: end: 20080211
  6. VICODIN [Concomitant]
     Route: 048
     Dates: end: 20080211
  7. IMODIUM [Concomitant]
     Route: 048
     Dates: end: 20080211
  8. COMPAZINE [Concomitant]
     Route: 048
     Dates: end: 20080211
  9. ATIVAN [Concomitant]
     Route: 048
  10. COUMADIN [Concomitant]
     Route: 048
  11. COUMADIN [Concomitant]
     Route: 048

REACTIONS (14)
  - ALANINE AMINOTRANSFERASE INCREASED [None]
  - BLOOD ALBUMIN DECREASED [None]
  - BLOOD ALKALINE PHOSPHATASE INCREASED [None]
  - CATHETER RELATED COMPLICATION [None]
  - DRY SKIN [None]
  - HAEMATOCRIT DECREASED [None]
  - INTERNATIONAL NORMALISED RATIO INCREASED [None]
  - MOUTH ULCERATION [None]
  - MUCOSAL INFLAMMATION [None]
  - ORAL HERPES [None]
  - PHARYNGOLARYNGEAL PAIN [None]
  - PYREXIA [None]
  - RASH ERYTHEMATOUS [None]
  - WHITE BLOOD CELL COUNT DECREASED [None]
